FAERS Safety Report 9739551 (Version 1)
Quarter: 2013Q4

REPORT INFORMATION
  Report Type: Spontaneous
  Country: NL (occurrence: NL)
  Receive Date: 20131209
  Receipt Date: 20131209
  Transmission Date: 20140711
  Serious: Yes (Other)
  Sender: FDA-Public Use
  Company Number: NL-ALEXION PHARMACEUTICALS INC.-A201303696

PATIENT
  Age: 30 Year
  Sex: Female

DRUGS (9)
  1. SOLIRIS 300MG [Suspect]
     Indication: PAROXYSMAL NOCTURNAL HAEMOGLOBINURIA
     Dosage: 900 MG, SINGLE
     Route: 042
     Dates: start: 20131105, end: 20131105
  2. SOLIRIS 300MG [Suspect]
     Dosage: 600 MG, SINGLE
     Route: 042
     Dates: start: 20131112, end: 20131112
  3. SOLIRIS 300MG [Suspect]
     Dosage: 600 MG, UNK
     Route: 042
     Dates: start: 20131118
  4. LABETALOL [Concomitant]
     Dosage: 200 MG, QID
  5. FRAXIPARINE [Concomitant]
     Dosage: 9500 IU, BID
  6. FOLIC ACID [Concomitant]
     Dosage: 5 MG, QD
  7. FERROFUMARAAT [Concomitant]
     Dosage: 200 MG, TID
  8. VITAMIN B12 [Concomitant]
     Dosage: 5 MG, QD
  9. BROXIL [Concomitant]
     Dosage: 500 MG, BID

REACTIONS (4)
  - Foetal distress syndrome [Recovered/Resolved]
  - Caesarean section [Recovered/Resolved]
  - Maternal exposure during pregnancy [Recovered/Resolved]
  - Inappropriate schedule of drug administration [Unknown]
